FAERS Safety Report 4657196-6 (Version None)
Quarter: 2005Q2

REPORT INFORMATION
  Report Type: 
  Country: None (occurrence: None)
  Receive Date: 20050506
  Receipt Date: 20050429
  Transmission Date: 20051028
  Serious: Yes (Hospitalization)
  Sender: FDA-Public Use
  Company Number: 2005062817

PATIENT
  Age: 56 Year
  Sex: Male
  Weight: 102.9665 kg

DRUGS (13)
  1. BEXTRA [Suspect]
     Indication: ANTIINFLAMMATORY THERAPY
     Dosage: 10 MG (10 MG, 1 IN 1 D),ORAL
     Route: 048
     Dates: start: 20040909, end: 20050414
  2. CELEBREX [Suspect]
     Indication: ANTIINFLAMMATORY THERAPY
     Dosage: 200 MG (10 MG, 1 IN 1 D), ORAL
     Route: 048
     Dates: start: 20000101, end: 20040701
  3. HYALURONIC ACID (HYALURONIC ACID) [Suspect]
     Indication: MONARTHRITIS
     Dosage: 2 IN 1 D
     Dates: start: 20041201
  4. NAPROXEN [Concomitant]
     Indication: MONARTHRITIS
     Dosage: 2 IN 1 D
     Dates: start: 20041201
  5. ENALAPRIL MALEATE [Concomitant]
  6. NAPROXEN [Concomitant]
  7. MELOXICAM [Concomitant]
  8. METFORMIN HCL [Concomitant]
  9. RANTIDINE (RANITIDINE) [Concomitant]
  10. NAPROXEN SODIUM (NAPROXN SODIUM) [Concomitant]
  11. IBUPROFEN [Concomitant]
  12. VICODIN [Concomitant]
  13. CORTISONE ACETATE [Concomitant]

REACTIONS (19)
  - DIARRHOEA [None]
  - DIZZINESS [None]
  - DRUG INEFFECTIVE [None]
  - DYSPHONIA [None]
  - HEADACHE [None]
  - HYPERHIDROSIS [None]
  - NAUSEA [None]
  - OEDEMA PERIPHERAL [None]
  - OSTEOARTHRITIS [None]
  - PAIN [None]
  - RASH ERYTHEMATOUS [None]
  - RASH PRURITIC [None]
  - ROTATOR CUFF REPAIR [None]
  - SKIN DISCOLOURATION [None]
  - SKIN HAEMORRHAGE [None]
  - SKIN LESION [None]
  - SKIN SWELLING [None]
  - SLUGGISHNESS [None]
  - STOMACH DISCOMFORT [None]
